FAERS Safety Report 9791629 (Version 2)
Quarter: 2014Q1

REPORT INFORMATION
  Report Type: Report from Study
  Country: US (occurrence: US)
  Receive Date: 20140102
  Receipt Date: 20140128
  Transmission Date: 20141002
  Serious: Yes (Hospitalization)
  Sender: FDA-Public Use
  Company Number: US-ROCHE-1328103

PATIENT
  Age: 60 Year
  Sex: Male
  Weight: 151.1 kg

DRUGS (22)
  1. BEVACIZUMAB [Suspect]
     Indication: HEPATOCELLULAR CARCINOMA
     Dosage: DAY 1 AND 15.
     Route: 042
     Dates: start: 20131021, end: 20131216
  2. ERLOTINIB [Suspect]
     Indication: HEPATOCELLULAR CARCINOMA
     Route: 048
     Dates: start: 20131021, end: 20131228
  3. GLUCOVANCE [Concomitant]
     Route: 065
     Dates: start: 20131118
  4. HYDROCORTISONE [Concomitant]
  5. LEVEMIR FLEXPEN [Concomitant]
     Route: 058
  6. LEVAQUIN [Concomitant]
     Route: 065
     Dates: start: 20140112
  7. NIFEDICAL XL [Concomitant]
     Route: 065
     Dates: start: 20130826, end: 20131231
  8. MYCOSTATIN [Concomitant]
     Route: 065
     Dates: start: 20130826
  9. PROTONIX (UNITED STATES) [Concomitant]
     Route: 065
     Dates: start: 20130731
  10. TRENTAL [Concomitant]
     Route: 065
     Dates: start: 20130826
  11. ALDACTONE (UNITED STATES) [Concomitant]
     Route: 065
     Dates: start: 20131028
  12. XARELTO [Concomitant]
     Route: 065
     Dates: end: 20131231
  13. XARELTO [Concomitant]
     Route: 065
     Dates: end: 20140102
  14. ZYLOPRIM [Concomitant]
     Route: 065
     Dates: start: 20130813
  15. VITAMIN C [Concomitant]
  16. BUMEX [Concomitant]
     Route: 065
     Dates: start: 20131211
  17. CLINDAGEL [Concomitant]
     Route: 065
     Dates: start: 20131111
  18. PLAVIX [Concomitant]
     Route: 065
     Dates: start: 20130813, end: 20131231
  19. VASOTEC [Concomitant]
     Route: 065
     Dates: start: 20130823
  20. FERROUS SULFATE [Concomitant]
     Route: 065
     Dates: start: 20131028
  21. FISH OIL [Concomitant]
  22. PROPRANOLOL [Concomitant]
     Dosage: 20 MG AT AM AND 10 MG AT PM
     Route: 065
     Dates: start: 20131231

REACTIONS (1)
  - Melaena [Recovered/Resolved]
